FAERS Safety Report 17546515 (Version 1)
Quarter: 2020Q1

REPORT INFORMATION
  Report Type: Spontaneous
  Country: DE (occurrence: DE)
  Receive Date: 20200316
  Receipt Date: 20200316
  Transmission Date: 20200409
  Serious: Yes (Hospitalization)
  Sender: FDA-Public Use
  Company Number: DE-ALLERGAN-2011261US

PATIENT
  Sex: Female

DRUGS (2)
  1. IBUPROFEN. [Suspect]
     Active Substance: IBUPROFEN
     Indication: SUICIDAL IDEATION
     Dosage: 2400 MG, SINGLE, DAILY DOSE: 2400 MG MILLGRAM(S) EVERY DAYS 6 SEPARATED DOSES
     Route: 048
     Dates: start: 20190813, end: 20190813
  2. CITALOPRAM HYDROBROMIDE - BP [Suspect]
     Active Substance: CITALOPRAM HYDROBROMIDE
     Indication: SUICIDAL IDEATION
     Dosage: 100 MG, SINGLE, DAILY DOSE: 100 MG MILLGRAM(S) EVERY DAYS 10 SEPARATED DOSES
     Route: 048
     Dates: start: 20190812, end: 20190812

REACTIONS (5)
  - Substance abuser [Recovered/Resolved]
  - Product administered to patient of inappropriate age [Unknown]
  - Nausea [Recovered/Resolved]
  - Dizziness [Recovered/Resolved]
  - Product use in unapproved indication [Unknown]

NARRATIVE: CASE EVENT DATE: 20190812
